FAERS Safety Report 9576012 (Version 1)
Quarter: 2013Q4

REPORT INFORMATION
  Report Type: Spontaneous
  Country: US (occurrence: US)
  Receive Date: 20131001
  Receipt Date: 20131001
  Transmission Date: 20140711
  Serious: No
  Sender: FDA-Public Use
  Company Number: US-AMGEN-USASP2013000549

PATIENT
  Sex: Female
  Weight: 69.84 kg

DRUGS (10)
  1. ENBREL [Suspect]
     Indication: RHEUMATOID ARTHRITIS
     Dosage: 50 MG, QWK
     Route: 058
  2. METHOTREXATE [Concomitant]
     Dosage: 2.5 MG, UNK
  3. TRIAMTERENE AND HYDROCHLOROTHIAZID [Concomitant]
     Dosage: 25-37.5, UNK, UNK
  4. CELEXA                             /00582602/ [Concomitant]
     Dosage: 20 MG, UNK
  5. LEVOTHYROXIN [Concomitant]
     Dosage: 112 MUG, UNK
  6. VITAMIN D                          /00107901/ [Concomitant]
     Dosage: 1000 UNIT, UNK
  7. KRILL OMEGA RED OIL [Concomitant]
     Dosage: 300 MG, UNK
  8. SELENIUM [Concomitant]
     Dosage: 200 MUG, UNK
  9. FOLIC ACID [Concomitant]
     Dosage: UNK
  10. ASPIRIN [Concomitant]
     Dosage: 325 MG, UNK

REACTIONS (2)
  - Oedema peripheral [Unknown]
  - Asthenia [Unknown]
